FAERS Safety Report 16062968 (Version 1)
Quarter: 2019Q1

REPORT INFORMATION
  Report Type: Spontaneous
  Country: US (occurrence: US)
  Receive Date: 20190312
  Receipt Date: 20190312
  Transmission Date: 20190418
  Serious: Yes (Hospitalization, Disabling)
  Sender: FDA-Public Use
  Company Number: US-JNJFOC-20190309023

PATIENT
  Sex: Male
  Weight: 102 kg

DRUGS (1)
  1. INVOKANA [Suspect]
     Active Substance: CANAGLIFLOZIN
     Indication: PRODUCT USED FOR UNKNOWN INDICATION
     Route: 048

REACTIONS (6)
  - Limb amputation [Unknown]
  - Fall [Unknown]
  - Postoperative wound infection [Recovering/Resolving]
  - Osteomyelitis acute [Recovering/Resolving]
  - Lisfranc fracture [Recovering/Resolving]
  - Diabetic gangrene [Recovering/Resolving]

NARRATIVE: CASE EVENT DATE: 2014
